FAERS Safety Report 6778744-6 (Version None)
Quarter: 2010Q2

REPORT INFORMATION
  Report Type: 
  Country: None (occurrence: None)
  Receive Date: 20100618
  Receipt Date: 20100325
  Transmission Date: 20101027
  Serious: Yes (Hospitalization, Other)
  Sender: FDA-Public Use
  Company Number: US-BAYER-200942555NA

PATIENT
  Age: 26 Year
  Sex: Female
  Weight: 66 kg

DRUGS (8)
  1. YAZ [Suspect]
     Indication: CONTRACEPTION
     Route: 048
     Dates: start: 20070621, end: 20091110
  2. ADVIL LIQUI-GELS [Concomitant]
  3. MOTRIN [Concomitant]
  4. ZYRTEC [Concomitant]
     Dates: start: 20040101
  5. NASONEX [Concomitant]
     Dates: start: 20000101
  6. CLARITIN [Concomitant]
     Dates: start: 20000101
  7. VALTREX [Concomitant]
     Dates: start: 20000701
  8. TYLENOL [Concomitant]
     Dates: start: 20070101

REACTIONS (3)
  - CHOLECYSTITIS CHRONIC [None]
  - CHOLELITHIASIS [None]
  - IRRITABLE BOWEL SYNDROME [None]
